FAERS Safety Report 23893886 (Version 1)
Quarter: 2024Q2

REPORT INFORMATION
  Report Type: Spontaneous
  Country: JP (occurrence: JP)
  Receive Date: 20240524
  Receipt Date: 20240524
  Transmission Date: 20240716
  Serious: Yes (Hospitalization, Other)
  Sender: FDA-Public Use
  Company Number: JP-SA-2020SA043544

PATIENT
  Age: 77 Year
  Sex: Female

DRUGS (4)
  1. KEVZARA [Suspect]
     Active Substance: SARILUMAB
     Indication: Rheumatoid arthritis
     Dosage: 3.49 PLUS/MINUS 1.35 SD DAYS BY SINGLE-DOSE TREATMENT OF 200 MG
     Route: 058
  2. IGURATIMOD [Suspect]
     Active Substance: IGURATIMOD
     Indication: Rheumatoid arthritis
     Dosage: 6.8 PLUS/MINUS 0.8 SD H BY SINGLE-DOSE TREATMENT OF 25 MG
     Route: 065
  3. CELECOXIB [Concomitant]
     Active Substance: CELECOXIB
     Indication: Rheumatoid arthritis
     Dosage: UNK
     Route: 065
  4. ELDECALCITOL [Concomitant]
     Active Substance: ELDECALCITOL
     Indication: Rheumatoid arthritis
     Dosage: UNK
     Route: 065

REACTIONS (11)
  - Trismus [Recovered/Resolved]
  - Eating disorder [Recovered/Resolved]
  - Gas gangrene [Recovered/Resolved]
  - Swelling face [Recovered/Resolved]
  - Erythema [Recovered/Resolved]
  - Subcutaneous abscess [Recovered/Resolved]
  - Feeling hot [Recovered/Resolved]
  - Tenderness [Recovered/Resolved]
  - Sepsis [Recovered/Resolved]
  - Vasospasm [Recovered/Resolved]
  - Ischaemia [Recovered/Resolved]
